FAERS Safety Report 5162826-9 (Version None)
Quarter: 2006Q4

REPORT INFORMATION
  Report Type: 
  Country: None (occurrence: None)
  Receive Date: 20061201
  Receipt Date: 20000329
  Transmission Date: 20070319
  Serious: Yes (Life-Threatening, Hospitalization)
  Sender: FDA-Public Use
  Company Number: FR-GLAXOSMITHKLINE-B0079753A

PATIENT
  Sex: Female
  Weight: 1.5 kg

DRUGS (7)
  1. ZIDOVUDINE [Suspect]
     Indication: ANTIVIRAL PROPHYLAXIS
     Route: 042
     Dates: start: 20000101, end: 20000115
  2. RETROVIR [Suspect]
     Indication: ANTIVIRAL PROPHYLAXIS
     Route: 048
     Dates: start: 20000114, end: 20000126
  3. COMBIVIR [Suspect]
     Indication: HIV INFECTION
     Route: 048
  4. INDINIVIR SULFATE [Suspect]
     Indication: HIV INFECTION
     Route: 048
  5. NEVIRAPINE [Suspect]
     Indication: HIV INFECTION
     Route: 048
     Dates: start: 20000101, end: 20000101
  6. NEVIRAPINE [Concomitant]
     Indication: ANTIVIRAL PROPHYLAXIS
     Route: 048
     Dates: start: 20000101, end: 20000101
  7. AMOXICILLIN [Concomitant]

REACTIONS (28)
  - AGGRESSION [None]
  - ANAEMIA [None]
  - ANTIVIRAL DRUG LEVEL ABOVE THERAPEUTIC [None]
  - ASPARTATE AMINOTRANSFERASE INCREASED [None]
  - BALANCE DISORDER [None]
  - BLOOD CREATINE PHOSPHOKINASE INCREASED [None]
  - BLOOD KETONE BODY INCREASED [None]
  - COLITIS [None]
  - COLONIC STENOSIS [None]
  - CRYING [None]
  - DILATATION VENTRICULAR [None]
  - DRUG EXPOSURE DURING PREGNANCY [None]
  - FOETAL DISTRESS SYNDROME [None]
  - FONTANELLE BULGING [None]
  - GASTROOESOPHAGEAL REFLUX DISEASE [None]
  - HYDROCEPHALUS [None]
  - LABORATORY TEST ABNORMAL [None]
  - LACTATE PYRUVATE RATIO INCREASED [None]
  - METABOLIC DISORDER [None]
  - NECROTISING COLITIS [None]
  - NEONATAL DISORDER [None]
  - NEUTROPENIA [None]
  - PREMATURE BABY [None]
  - SEPSIS [None]
  - SOCIAL AVOIDANT BEHAVIOUR [None]
  - STAPHYLOCOCCAL SEPSIS [None]
  - STRABISMUS [None]
  - SUBDURAL HAEMORRHAGE [None]
